FAERS Safety Report 17349344 (Version 1)
Quarter: 2020Q1

REPORT INFORMATION
  Report Type: Spontaneous
  Country: GB (occurrence: GB)
  Receive Date: 20200130
  Receipt Date: 20200130
  Transmission Date: 20200409
  Serious: Yes (Other)
  Sender: FDA-Public Use
  Company Number: GB-AUROBINDO-AUR-APL-2020-004434

PATIENT
  Sex: Male

DRUGS (4)
  1. METHADONE [Concomitant]
     Active Substance: METHADONE HYDROCHLORIDE
     Indication: PRODUCT USED FOR UNKNOWN INDICATION
     Dosage: UNK
     Route: 065
  2. COCAINE [Concomitant]
     Active Substance: COCAINE
     Indication: PRODUCT USED FOR UNKNOWN INDICATION
     Dosage: UNK
     Route: 065
  3. DIAMORPHINE [Concomitant]
     Active Substance: DIAMORPHINE
     Indication: PRODUCT USED FOR UNKNOWN INDICATION
     Dosage: UNK
     Route: 065
  4. BUPIVACAINE HYDROCHLORIDE. [Suspect]
     Active Substance: BUPIVACAINE HYDROCHLORIDE
     Indication: PRODUCT USED FOR UNKNOWN INDICATION
     Dosage: UNK
     Route: 065

REACTIONS (18)
  - Somnolence [Unknown]
  - Drug dependence [Unknown]
  - Balance disorder [Unknown]
  - Vision blurred [Unknown]
  - Euphoric mood [Unknown]
  - Confusional state [Unknown]
  - Fatigue [Unknown]
  - Dyspnoea [Unknown]
  - Neurotoxicity [Unknown]
  - Restlessness [Unknown]
  - Cardiotoxicity [Unknown]
  - Local anaesthetic systemic toxicity [Unknown]
  - Coma [Unknown]
  - Delirium [Unknown]
  - Cognitive disorder [Unknown]
  - Lethargy [Unknown]
  - Disturbance in attention [Unknown]
  - Glassy eyes [Unknown]
